FAERS Safety Report 9934044 (Version 1)
Quarter: 2014Q1

REPORT INFORMATION
  Report Type: Spontaneous
  Country: US (occurrence: US)
  Receive Date: 20140228
  Receipt Date: 20140228
  Transmission Date: 20141002
  Serious: No
  Sender: FDA-Public Use
  Company Number: US-MYLANLABS-2013S1001390

PATIENT
  Age: 79 Year
  Sex: Male
  Weight: 108.86 kg

DRUGS (4)
  1. METFORMIN HYDROCHLORIDE TABLETS USP [Suspect]
     Indication: DIABETES MELLITUS
     Route: 048
     Dates: start: 201212
  2. LISINOPRIL [Concomitant]
  3. GLYBURIDE [Concomitant]
  4. SIMVASTATIN [Concomitant]

REACTIONS (2)
  - Drug effect decreased [Not Recovered/Not Resolved]
  - Glycosylated haemoglobin increased [Not Recovered/Not Resolved]
